FAERS Safety Report 21217709 (Version 1)
Quarter: 2022Q3

REPORT INFORMATION
  Report Type: Spontaneous
  Country: US (occurrence: None)
  Receive Date: 20220815
  Receipt Date: 20220815
  Transmission Date: 20221027
  Serious: No
  Sender: FDA-Public Use
  Company Number: None

PATIENT
  Sex: Male

DRUGS (2)
  1. AUSTEDO [Suspect]
     Active Substance: DEUTETRABENAZINE
     Indication: Dyskinesia
     Dosage: 6 MG ORAL??TAKE 1 TABLET BY MOUTH IN THE MORNING AND 2 TABLETS AT BEDTIME.  ?
     Route: 048
     Dates: start: 20220425
  2. AUSTEDO [Suspect]
     Active Substance: DEUTETRABENAZINE
     Dosage: OTHER FREQUENCY : 2 AT BEDTIME;?
     Route: 048

REACTIONS (2)
  - Lethargy [None]
  - Drug ineffective [None]
